FAERS Safety Report 24130974 (Version 1)
Quarter: 2024Q3

REPORT INFORMATION
  Report Type: Spontaneous
  Country: CN (occurrence: CN)
  Receive Date: 20240724
  Receipt Date: 20240724
  Transmission Date: 20241016
  Serious: Yes (Hospitalization)
  Sender: GLAXOSMITHKLINE
  Company Number: CN-GLAXOSMITHKLINE-CN2024APC090335

PATIENT

DRUGS (3)
  1. FLUTICASONE PROPIONATE [Suspect]
     Active Substance: FLUTICASONE PROPIONATE
     Indication: Obliterative bronchiolitis
     Dosage: 1 DF, BID
     Route: 055
     Dates: start: 20240604
  2. FLUTICASONE PROPIONATE [Suspect]
     Active Substance: FLUTICASONE PROPIONATE
     Indication: Interstitial lung disease
  3. UNSPECIFIED INGREDIENT [Concomitant]
     Active Substance: UNSPECIFIED INGREDIENT
     Indication: Immune system disorder
     Dosage: UNK
     Route: 048
     Dates: start: 202407

REACTIONS (6)
  - Hospitalisation [Unknown]
  - Rash [Unknown]
  - Incorrect dose administered [Not Recovered/Not Resolved]
  - Product prescribing issue [Unknown]
  - Incorrect route of product administration [Unknown]
  - Device use issue [Unknown]

NARRATIVE: CASE EVENT DATE: 20240601
